FAERS Safety Report 9334072 (Version 1)
Quarter: 2013Q2

REPORT INFORMATION
  Report Type: Spontaneous
  Country: DE (occurrence: None)
  Receive Date: 20130604
  Receipt Date: 20130604
  Transmission Date: 20140414
  Serious: Yes (Congenital Anomaly, Other)
  Sender: FDA-Public Use
  Company Number: AUR-APL-2013-04492

PATIENT
  Sex: Male
  Weight: 4.87 kg

DRUGS (7)
  1. LAMOTRIGINE (LAMOTRIGINE) [Suspect]
     Indication: EPILEPSY
     Dosage: (100 MG, 3 IN 1 D)
     Route: 064
     Dates: start: 20110806, end: 20120511
  2. KEPPRA (LEVETIRACETAM) [Suspect]
     Dosage: (1000 MG 2 IN 1 D)
     Route: 064
     Dates: start: 20110806, end: 20130511
  3. SEROQUEL (QUETIAPINE FUMARATE) [Suspect]
     Dosage: (25 MG, 2 IN 1 D)
     Route: 064
     Dates: start: 20110806, end: 20120511
  4. RIVOTRIL (CLONAZEPAM) [Suspect]
     Dosage: 1  D
     Route: 064
     Dates: start: 20110806, end: 20120315
  5. EUTHYROX [Concomitant]
  6. STANGYL [Concomitant]
  7. HEROIN [Concomitant]

REACTIONS (5)
  - Convulsion neonatal [None]
  - Hypertonia [None]
  - Feeling jittery [None]
  - Drug withdrawal syndrome neonatal [None]
  - Maternal drugs affecting foetus [None]
